FAERS Safety Report 9133784 (Version 2)
Quarter: 2013Q2

REPORT INFORMATION
  Report Type: Spontaneous
  Country: US (occurrence: US)
  Receive Date: 20130303
  Receipt Date: 20130418
  Transmission Date: 20140414
  Serious: No
  Sender: FDA-Public Use
  Company Number: US-ASTRAZENECA-2013SE10956

PATIENT
  Age: 78 Year
  Sex: Male
  Weight: 101.2 kg

DRUGS (5)
  1. SYMBICORT [Suspect]
     Indication: CHRONIC OBSTRUCTIVE PULMONARY DISEASE
     Dosage: 160MCG/4.5 MCG, 2 PUFFS, TWO TIMES A DAY
     Route: 055
     Dates: start: 2006, end: 20130203
  2. SYMBICORT [Suspect]
     Indication: CHRONIC OBSTRUCTIVE PULMONARY DISEASE
     Dosage: 320 MCG, TWO TIMES A DAY
     Route: 055
     Dates: start: 20130314
  3. PULMICORT FLEXHALER [Suspect]
     Indication: CHRONIC OBSTRUCTIVE PULMONARY DISEASE
     Dosage: 360 MCG,TWO TIMES A DAY
     Route: 055
     Dates: start: 20130206, end: 20130214
  4. PREDNISONE [Concomitant]
     Indication: ANKLE DEFORMITY
     Route: 048
  5. IBUPROPHEN [Concomitant]
     Indication: ARTHRALGIA
     Route: 048

REACTIONS (3)
  - Dyspnoea exertional [Unknown]
  - Drug dose omission [Unknown]
  - Drug ineffective [Unknown]
